FAERS Safety Report 8485449-2 (Version None)
Quarter: 2012Q3

REPORT INFORMATION
  Report Type: 
  Country: None (occurrence: None)
  Receive Date: 20120703
  Receipt Date: 20120627
  Transmission Date: 20120928
  Serious: Yes (Other)
  Sender: FDA-Public Use
  Company Number: US-PFIZER INC-2012154929

PATIENT
  Sex: Female

DRUGS (9)
  1. TEGRETOL-XR [Concomitant]
     Dosage: UNK
  2. DILANTIN-125 [Interacting]
     Indication: CONVULSION
     Dosage: 300 MG
  3. FLAX SEED [Concomitant]
     Dosage: UNK
  4. COCONUT OIL [Concomitant]
     Dosage: UNK
  5. LAMICTAL [Interacting]
     Indication: CONVULSION
     Dosage: 275 MG, 2X/DAY
     Route: 048
     Dates: start: 20110101
  6. CLONAZEPAM [Concomitant]
     Dosage: UNK
  7. VITAMIN B COMPLEX CAP [Concomitant]
     Dosage: UNK
  8. LAMOTRIGINE [Suspect]
     Indication: CONVULSION
     Dosage: UNK
     Route: 048
  9. LAMICTAL [Interacting]
     Dosage: 300 MG, 2X/DAY
     Route: 048

REACTIONS (11)
  - DRUG INTERACTION [None]
  - ANTICONVULSANT DRUG LEVEL INCREASED [None]
  - AURA [None]
  - DRUG INEFFECTIVE [None]
  - CONVULSION [None]
  - ANTICONVULSANT DRUG LEVEL DECREASED [None]
  - COGNITIVE DISORDER [None]
  - DISSOCIATION [None]
  - DYSTONIA [None]
  - NERVOUS SYSTEM DISORDER [None]
  - INCOHERENT [None]
